FAERS Safety Report 18016258 (Version 1)
Quarter: 2020Q3

REPORT INFORMATION
  Report Type: Spontaneous
  Country: FR (occurrence: FR)
  Receive Date: 20200713
  Receipt Date: 20200713
  Transmission Date: 20201103
  Serious: Yes (Hospitalization, Other)
  Sender: FDA-Public Use
  Company Number: FR-009507513-2007FRA004465

PATIENT
  Age: 27 Year
  Sex: Male

DRUGS (3)
  1. IPILIMUMAB [Suspect]
     Active Substance: IPILIMUMAB
     Indication: MALIGNANT MELANOMA STAGE III
     Dosage: 3 MILLIGRAM/KILOGRAM, Q3W
     Route: 042
  2. PEMBROLIZUMAB. [Suspect]
     Active Substance: PEMBROLIZUMAB
     Indication: MALIGNANT MELANOMA STAGE III
     Dosage: 200 MILLIGRAM, Q3W, 3 CYCLES
  3. NIVOLUMAB [Suspect]
     Active Substance: NIVOLUMAB
     Indication: MALIGNANT MELANOMA STAGE III
     Dosage: 1 MILLIGRAM/KILOGRAM, Q3W
     Route: 042

REACTIONS (5)
  - Lymphocytic hypophysitis [Unknown]
  - Meningitis aseptic [Unknown]
  - Hepatocellular injury [Unknown]
  - Haemophagocytic lymphohistiocytosis [Recovered/Resolved]
  - Autoimmune colitis [Unknown]
